FAERS Safety Report 8410516-9 (Version None)
Quarter: 2012Q2

REPORT INFORMATION
  Report Type: 
  Country: None (occurrence: None)
  Receive Date: 20120529
  Receipt Date: 20050217
  Transmission Date: 20120825
  Serious: Yes (Other)
  Sender: FDA-Public Use
  Company Number: 02100-USA-05-0024

PATIENT
  Age: 66 Year
  Sex: Male

DRUGS (5)
  1. GLYBURIDE [Concomitant]
  2. CILOSTAZOL [Suspect]
     Dosage: 100 MG, QD, ORAL
     Route: 048
     Dates: start: 20050101, end: 20050101
  3. ACTOS [Concomitant]
  4. PLETAL [Suspect]
     Dosage: 100 MG, QD, ORAL
     Route: 048
     Dates: start: 19990101, end: 20050101
  5. TOPROL-XL [Concomitant]

REACTIONS (3)
  - PROSTATE CANCER [None]
  - DRUG ERUPTION [None]
  - RENAL IMPAIRMENT [None]
